FAERS Safety Report 6466073-X (Version None)
Quarter: 2009Q4

REPORT INFORMATION
  Report Type: 
  Country: None (occurrence: None)
  Receive Date: 20091202
  Receipt Date: 20091123
  Transmission Date: 20100525
  Serious: Yes (Hospitalization)
  Sender: FDA-Public Use
  Company Number: US-JNJFOC-20091107956

PATIENT
  Sex: Female
  Weight: 104.33 kg

DRUGS (5)
  1. FENTANYL CITRATE [Suspect]
     Indication: PAIN
     Route: 062
  2. PANCREASE MT 4 [Concomitant]
     Indication: PANCREATITIS
     Route: 048
  3. COMPAZINE [Concomitant]
     Indication: NAUSEA
     Route: 048
  4. ATIVAN [Concomitant]
     Indication: SCIATICA
     Route: 048
  5. DILAUDID [Concomitant]
     Indication: PAIN
     Route: 048

REACTIONS (5)
  - NAUSEA [None]
  - PANCREATITIS [None]
  - PRODUCT ADHESION ISSUE [None]
  - VOMITING [None]
  - WRONG TECHNIQUE IN DRUG USAGE PROCESS [None]
